FAERS Safety Report 4284772-5 (Version None)
Quarter: 2004Q1

REPORT INFORMATION
  Report Type: 
  Country: None (occurrence: None)
  Receive Date: 20040202
  Receipt Date: 20040123
  Transmission Date: 20041129
  Serious: Yes (Disabling)
  Sender: FDA-Public Use
  Company Number: CH-JNJFOC-20040104326

PATIENT
  Sex: Male
  Weight: 71 kg

DRUGS (2)
  1. DURAGESIC [Suspect]
     Indication: PAIN
     Dosage: 75 UG/HR, TRANSDERMAL
     Route: 062
     Dates: end: 20040107
  2. PAROXETINE HCL [Suspect]
     Indication: DEPRESSION
     Dosage: 30 MG, 1 IN 1 DAY; ORAL
     Route: 048

REACTIONS (10)
  - CONFUSIONAL STATE [None]
  - DISORIENTATION [None]
  - DRUG INTERACTION [None]
  - HALLUCINATION, VISUAL [None]
  - MIOSIS [None]
  - MYOCLONUS [None]
  - OVERDOSE [None]
  - SOMNOLENCE [None]
  - SPEECH DISORDER [None]
  - TOXIC INDUCED ENCEPHALOPATHY [None]
